FAERS Safety Report 20796136 (Version 1)
Quarter: 2022Q2

REPORT INFORMATION
  Report Type: Spontaneous
  Country: US (occurrence: US)
  Receive Date: 20220506
  Receipt Date: 20220506
  Transmission Date: 20220721
  Serious: No
  Sender: FDA-Public Use
  Company Number: US-PFIZER INC-202200650705

PATIENT

DRUGS (2)
  1. TESSALON [Suspect]
     Active Substance: BENZONATATE
     Dosage: 200 MG, ONCE, TAKE AT NIGHT
  2. TESSALON [Suspect]
     Active Substance: BENZONATATE
     Dosage: 100 MG

REACTIONS (2)
  - Drug ineffective [Unknown]
  - Intentional product misuse [Unknown]
